FAERS Safety Report 20040500 (Version 1)
Quarter: 2021Q4

REPORT INFORMATION
  Report Type: Spontaneous
  Country: US (occurrence: None)
  Receive Date: 20211107
  Receipt Date: 20211107
  Transmission Date: 20220303
  Serious: No
  Sender: FDA-Public Use
  Company Number: None

PATIENT
  Age: 71 Year
  Sex: Male
  Weight: 128 kg

DRUGS (1)
  1. SULFAMETHOXAZOLE\TRIMETHOPRIM [Suspect]
     Active Substance: SULFAMETHOXAZOLE\TRIMETHOPRIM
     Indication: Upper respiratory tract infection
     Dosage: OTHER QUANTITY : 2 TAB;?FREQUENCY : 3 TIMES A DAY;?
     Route: 048
     Dates: start: 20210625, end: 20210705

REACTIONS (1)
  - Hyperkalaemia [None]

NARRATIVE: CASE EVENT DATE: 20210705
